FAERS Safety Report 22955643 (Version 2)
Quarter: 2024Q1

REPORT INFORMATION
  Report Type: Report from Study
  Country: JP (occurrence: JP)
  Receive Date: 20230918
  Receipt Date: 20240219
  Transmission Date: 20240410
  Serious: Yes (Death, Life-Threatening, Other)
  Sender: FDA-Public Use
  Company Number: JP-002147023-NVSJ2023JP010099

PATIENT
  Age: 85 Year
  Sex: Male
  Weight: 74.1 kg

DRUGS (6)
  1. LUTATHERA [Suspect]
     Active Substance: LUTETIUM OXODOTREOTIDE LU-177
     Indication: Neuroendocrine cancer of the prostate metastatic
     Dosage: 7.4 GBQ
     Route: 042
     Dates: start: 20220421, end: 20220421
  2. LUTATHERA [Suspect]
     Active Substance: LUTETIUM OXODOTREOTIDE LU-177
     Dosage: 4.8 GBQ
     Route: 042
     Dates: start: 20220616, end: 20220616
  3. ARGININE\LYSINE [Suspect]
     Active Substance: ARGININE\LYSINE
     Indication: Product used for unknown indication
     Dosage: UNK
     Route: 042
  4. ARGININE\LYSINE [Suspect]
     Active Substance: ARGININE\LYSINE
     Dosage: UNK
     Route: 042
  5. PALONOSETRON [Concomitant]
     Active Substance: PALONOSETRON
     Indication: Prophylaxis of nausea and vomiting
     Dosage: UNK
     Route: 065
  6. PALONOSETRON [Concomitant]
     Active Substance: PALONOSETRON
     Dosage: UNK
     Route: 065

REACTIONS (11)
  - Myocardial ischaemia [Fatal]
  - Pulmonary congestion [Fatal]
  - Atelectasis [Fatal]
  - Cardiac failure [Fatal]
  - Thrombocytopenia [Not Recovered/Not Resolved]
  - White blood cell count decreased [Unknown]
  - Blood creatinine increased [Not Recovered/Not Resolved]
  - Blood pressure diastolic decreased [Unknown]
  - Monocyte count increased [Unknown]
  - General physical health deterioration [Unknown]
  - Heart rate decreased [Unknown]

NARRATIVE: CASE EVENT DATE: 20220703
